FAERS Safety Report 4721620-0 (Version None)
Quarter: 2005Q3

REPORT INFORMATION
  Report Type: 
  Country: None (occurrence: None)
  Receive Date: 20050721
  Receipt Date: 20050107
  Transmission Date: 20060218
  Serious: No
  Sender: FDA-Public Use
  Company Number: US-BRISTOL-MYERS SQUIBB COMPANY-12819322

PATIENT
  Age: 48 Year
  Sex: Male
  Weight: 109 kg

DRUGS (9)
  1. COUMADIN [Suspect]
     Indication: AORTIC VALVE REPLACEMENT
     Dosage: 1 1/2 7.5MG TABLET TUES, THURS, SAT; ONE 7.5MG TABLET SUN, MON, WED, FRI.
     Route: 048
     Dates: start: 19870101
  2. ALBUTEROL [Concomitant]
  3. AMANTADINE [Concomitant]
  4. AMITRIPTYLINE HCL [Concomitant]
  5. ATENOLOL [Concomitant]
  6. IPRATROPIUM BROMIDE [Concomitant]
  7. LASIX [Concomitant]
  8. PULMICORT [Concomitant]
  9. TAMBOCOR [Concomitant]

REACTIONS (1)
  - INTERNATIONAL NORMALISED RATIO ABNORMAL [None]
